FAERS Safety Report 8227314-1 (Version None)
Quarter: 2012Q1

REPORT INFORMATION
  Report Type: 
  Country: None (occurrence: None)
  Receive Date: 20120322
  Receipt Date: 20120319
  Transmission Date: 20120608
  Serious: Yes (Hospitalization)
  Sender: FDA-Public Use
  Company Number: PHHO2012NL000768

PATIENT
  Sex: Male
  Weight: 61 kg

DRUGS (2)
  1. CAPECITABINE [Suspect]
     Indication: PANCREATIC CARCINOMA
     Dosage: 2000 MG 14 D PER 3 W
     Route: 048
     Dates: start: 20110628, end: 20120102
  2. EVEROLIMUS [Suspect]
     Indication: PANCREATIC CARCINOMA
     Dosage: 5 MG, QD
     Route: 048
     Dates: start: 20110620, end: 20120102

REACTIONS (1)
  - DUODENAL ULCER [None]
